FAERS Safety Report 23825578 (Version 1)
Quarter: 2024Q2

REPORT INFORMATION
  Report Type: Spontaneous
  Country: US (occurrence: US)
  Receive Date: 20240507
  Receipt Date: 20240507
  Transmission Date: 20240716
  Serious: No
  Sender: FDA-Public Use
  Company Number: US-HIKMA PHARMACEUTICALS USA INC.-US-H14001-23-67318

PATIENT
  Sex: Female

DRUGS (4)
  1. AMIKACIN [Suspect]
     Active Substance: AMIKACIN
     Indication: Product used for unknown indication
     Dosage: UNKNOWN
     Route: 042
     Dates: end: 20231108
  2. CLOFAZIMINE [Suspect]
     Active Substance: CLOFAZIMINE
     Indication: Product used for unknown indication
     Dosage: UNKNOWN
     Route: 065
     Dates: end: 20231108
  3. IMIPENEM [Suspect]
     Active Substance: IMIPENEM
     Indication: Product used for unknown indication
     Dosage: UNKNOWN
     Route: 042
     Dates: end: 20231108
  4. NUZYRA [Suspect]
     Active Substance: OMADACYCLINE
     Indication: Mycobacterial infection
     Dosage: 300 MILLIGRAM, QD
     Route: 048
     Dates: start: 20230808, end: 20231108

REACTIONS (4)
  - Furuncle [Recovering/Resolving]
  - Peripheral swelling [Recovering/Resolving]
  - Inflammation [Recovering/Resolving]
  - Rash pruritic [Recovering/Resolving]
